FAERS Safety Report 4405056-8 (Version None)
Quarter: 2004Q3

REPORT INFORMATION
  Report Type: 
  Country: None (occurrence: None)
  Receive Date: 20040716
  Receipt Date: 20040702
  Transmission Date: 20050211
  Serious: Yes (Hospitalization)
  Sender: FDA-Public Use
  Company Number: F01200401380

PATIENT
  Age: 61 Year
  Sex: Male

DRUGS (6)
  1. (OXALIPLATIN) SOLUTION 130 MG/M2 [Suspect]
     Indication: NON-SMALL CELL LUNG CANCER
     Dosage: 130MG/M2 Q3W
     Route: 042
     Dates: start: 20040607, end: 20040607
  2. GEMCITABINE SOLUTION 1000 MG / M2 [Suspect]
     Dosage: 1000 MG M2 Q3W
     Route: 042
     Dates: start: 20040607, end: 20040607
  3. CRESTOR [Concomitant]
  4. PHENERGAN EXPECTORANT (CHLOROFORM CITRIC ACID IPECAUANHA FLUID EXTRACT [Concomitant]
  5. TESSALON PERLES (BENZONATATE) [Concomitant]
  6. COMPAZINE [Concomitant]

REACTIONS (11)
  - ANOREXIA [None]
  - AORTIC VALVE INCOMPETENCE [None]
  - ARRHYTHMIA SUPRAVENTRICULAR [None]
  - ATRIAL FLUTTER [None]
  - DIZZINESS [None]
  - MITRAL VALVE INCOMPETENCE [None]
  - MITRAL VALVE PROLAPSE [None]
  - TRICUSPID VALVE INCOMPETENCE [None]
  - VENTRICULAR DYSFUNCTION [None]
  - VENTRICULAR HYPOKINESIA [None]
  - WEIGHT DECREASED [None]
